FAERS Safety Report 18643213 (Version 2)
Quarter: 2021Q1

REPORT INFORMATION
  Report Type: Report from Study
  Country: GB (occurrence: GB)
  Receive Date: 20201221
  Receipt Date: 20210308
  Transmission Date: 20210419
  Serious: Yes (Other)
  Sender: FDA-Public Use
  Company Number: NVSC2020GB331473

PATIENT
  Sex: Female

DRUGS (1)
  1. HYRIMOZ [Suspect]
     Active Substance: ADALIMUMAB-ADAZ
     Indication: BEHCET^S SYNDROME
     Dosage: 40MG/0.8ML, EOW (AS DIRECTED)
     Route: 065

REACTIONS (4)
  - Incorrect dose administered [Unknown]
  - Product use in unapproved indication [Unknown]
  - Behcet^s syndrome [Unknown]
  - Device malfunction [Unknown]
